FAERS Safety Report 5151729-1 (Version None)
Quarter: 2006Q4

REPORT INFORMATION
  Report Type: 
  Country: None (occurrence: None)
  Receive Date: 20061109
  Receipt Date: 20061027
  Transmission Date: 20070319
  Serious: Yes (Other)
  Sender: FDA-Public Use
  Company Number: 2006098778

PATIENT
  Age: 72 Year
  Sex: Male
  Weight: 113.3993 kg

DRUGS (2)
  1. LYRICA [Suspect]
     Indication: DIABETIC NEUROPATHY
     Dosage: 300 MG (150 MG, 2 IN 1 D);
  2. WARFARIN SODIUM [Suspect]
     Dosage: 10 MG (10MG, 1 IN 1 D);

REACTIONS (1)
  - INTERNATIONAL NORMALISED RATIO INCREASED [None]
